FAERS Safety Report 17580451 (Version 7)
Quarter: 2020Q4

REPORT INFORMATION
  Report Type: Spontaneous
  Country: US (occurrence: US)
  Receive Date: 20200325
  Receipt Date: 20201105
  Transmission Date: 20210113
  Serious: Yes (Other)
  Sender: FDA-Public Use
  Company Number: US-VERTEX PHARMACEUTICALS-2020-002288

PATIENT
  Age: 20 Year
  Sex: Male

DRUGS (1)
  1. TRIKAFTA [Suspect]
     Active Substance: ELEXACAFTOR\IVACAFTOR\TEZACAFTOR
     Indication: CYSTIC FIBROSIS
     Dosage: 100MG ELEXACAFTOR/50MG TEZACAFTOR/75MG IVACAFTOR AND 150MG IVACAFTOR TABS, BID
     Route: 048
     Dates: start: 20191220

REACTIONS (9)
  - Increased appetite [Unknown]
  - Retching [Unknown]
  - Seizure [Unknown]
  - Decreased appetite [Not Recovered/Not Resolved]
  - Distal intestinal obstruction syndrome [Not Recovered/Not Resolved]
  - Feeling abnormal [Unknown]
  - Defaecation urgency [Unknown]
  - Cough [Recovering/Resolving]
  - Product dose omission issue [Recovered/Resolved]

NARRATIVE: CASE EVENT DATE: 20191220
